FAERS Safety Report 11412258 (Version 1)
Quarter: 2015Q3

REPORT INFORMATION
  Report Type: Spontaneous
  Country: US (occurrence: US)
  Receive Date: 20150824
  Receipt Date: 20150824
  Transmission Date: 20151125
  Serious: Yes (Other)
  Sender: FDA-Public Use
  Company Number: US-GLAXOSMITHKLINE-US2014GSK009271

PATIENT
  Age: 76 Year
  Sex: Female

DRUGS (6)
  1. VERAMYST [Concomitant]
     Active Substance: FLUTICASONE FUROATE
  2. ISOSORBIDE. [Concomitant]
     Active Substance: ISOSORBIDE
  3. NORVASC [Concomitant]
     Active Substance: AMLODIPINE BESYLATE
  4. PULMICORT TURBUHALER [Concomitant]
     Active Substance: BUDESONIDE
  5. METOPROLOL [Concomitant]
     Active Substance: METOPROLOL
  6. LAMICTAL [Suspect]
     Active Substance: LAMOTRIGINE
     Indication: SEIZURE
     Dosage: 150 MG, QD
     Dates: start: 1997

REACTIONS (4)
  - Malaise [Not Recovered/Not Resolved]
  - Cataract operation [Recovered/Resolved]
  - Cataract [Unknown]
  - Asthenia [Not Recovered/Not Resolved]

NARRATIVE: CASE EVENT DATE: 2001
